FAERS Safety Report 17762781 (Version 2)
Quarter: 2020Q2

REPORT INFORMATION
  Report Type: Report from Study
  Country: US (occurrence: US)
  Receive Date: 20200508
  Receipt Date: 20200520
  Transmission Date: 20200714
  Serious: Yes (Hospitalization)
  Sender: FDA-Public Use
  Company Number: US-EISAI MEDICAL RESEARCH-EC-2020-073122

PATIENT
  Age: 64 Year
  Sex: Female
  Weight: 94 kg

DRUGS (14)
  1. LENVIMA [Suspect]
     Active Substance: LENVATINIB
     Indication: ENDOMETRIAL NEOPLASM
     Route: 048
     Dates: start: 20200403, end: 202005
  2. HYDROCODONE-ACETAMINOPHEN [Concomitant]
     Active Substance: ACETAMINOPHEN\HYDROCODONE
  3. DOCUSATE SODIUM. [Concomitant]
     Active Substance: DOCUSATE SODIUM
  4. TUMS [Concomitant]
     Active Substance: CALCIUM CARBONATE
  5. PANTOPRAZOLE SODIUM. [Concomitant]
     Active Substance: PANTOPRAZOLE SODIUM
  6. TYLENOL [Concomitant]
     Active Substance: ACETAMINOPHEN
  7. POLYETHYLENE GLYCOL [Concomitant]
     Active Substance: POLYETHYLENE GLYCOLS
  8. MULTIVITAMINS [Concomitant]
     Active Substance: VITAMINS
  9. CLARITIN [Concomitant]
     Active Substance: LORATADINE
  10. FLUCONAZOLE. [Concomitant]
     Active Substance: FLUCONAZOLE
  11. CLARITIN [Concomitant]
     Active Substance: LORATADINE
  12. AMLODIPINE BESYLATE. [Concomitant]
     Active Substance: AMLODIPINE BESYLATE
  13. METOCLOPRAMIDE HCL [Concomitant]
     Active Substance: METOCLOPRAMIDE HYDROCHLORIDE
  14. DICYCLOMINE HCL [Concomitant]
     Active Substance: DICYCLOMINE HYDROCHLORIDE

REACTIONS (13)
  - Fatigue [Unknown]
  - Asthenia [Unknown]
  - Haematochezia [Unknown]
  - Blood pressure diastolic increased [Recovering/Resolving]
  - Blood pressure systolic decreased [Unknown]
  - Regurgitation [Unknown]
  - Dehydration [Unknown]
  - White blood cell count increased [Unknown]
  - Headache [Recovered/Resolved]
  - Rash macular [Unknown]
  - Ileus [Unknown]
  - Muscular weakness [Unknown]
  - Weight decreased [Unknown]

NARRATIVE: CASE EVENT DATE: 2020
